FAERS Safety Report 4517578-X (Version None)
Quarter: 2004Q4

REPORT INFORMATION
  Report Type: 
  Country: None (occurrence: None)
  Receive Date: 20041203
  Receipt Date: 20040420
  Transmission Date: 20050328
  Serious: Yes (Hospitalization, Other)
  Sender: FDA-Public Use
  Company Number: BR-BRISTOL-MYERS SQUIBB COMPANY-12565933

PATIENT
  Age: 73 Year
  Sex: Female

DRUGS (5)
  1. ABATACEPT [Suspect]
     Indication: RHEUMATOID ARTHRITIS
     Dosage: NO. OF COURSES: 13
     Route: 042
     Dates: start: 20030605, end: 20040407
  2. METHOTREXATE [Suspect]
     Dates: start: 20020401, end: 20040420
  3. PREDNISONE [Concomitant]
     Dates: start: 19940101
  4. FOLIC ACID [Concomitant]
     Dates: start: 20000803, end: 20040420
  5. DORFLEX [Concomitant]
     Dosage: DOSAGE FORM + TABLET
     Route: 048
     Dates: start: 20031104

REACTIONS (16)
  - ACUTE VESTIBULAR SYNDROME [None]
  - AORTIC ATHEROSCLEROSIS [None]
  - BREAST PAIN [None]
  - CALCINOSIS [None]
  - CARDIAC DISORDER [None]
  - CHEST PAIN [None]
  - DEHYDRATION [None]
  - DISORIENTATION [None]
  - GASTROENTERITIS [None]
  - GASTROINTESTINAL HAEMORRHAGE [None]
  - INFUSION RELATED REACTION [None]
  - LUNG NEOPLASM MALIGNANT [None]
  - MITRAL VALVE SCLEROSIS [None]
  - PAIN IN EXTREMITY [None]
  - PYREXIA [None]
  - RENAL CELL CARCINOMA STAGE UNSPECIFIED [None]
